FAERS Safety Report 9316690 (Version 1)
Quarter: 2013Q2

REPORT INFORMATION
  Report Type: Spontaneous
  Country: US (occurrence: None)
  Receive Date: 20130528
  Receipt Date: 20130528
  Transmission Date: 20140414
  Serious: Yes (Other)
  Sender: FDA-Public Use
  Company Number: None

PATIENT
  Age: 51 Year
  Sex: Female
  Weight: 80.29 kg

DRUGS (2)
  1. ATORVASTATIN [Suspect]
  2. SIMVASTATIN [Suspect]

REACTIONS (2)
  - Myalgia [None]
  - Asthenia [None]
